FAERS Safety Report 9788375 (Version 1)
Quarter: 2013Q4

REPORT INFORMATION
  Report Type: Report from Study
  Country: NL (occurrence: NL)
  Receive Date: 20131230
  Receipt Date: 20131230
  Transmission Date: 20140711
  Serious: Yes (Hospitalization, Other)
  Sender: FDA-Public Use
  Company Number: NL-INCYTE CORPORATION-2013IN003094

PATIENT
  Sex: 0
  Weight: 67.3 kg

DRUGS (1)
  1. INC424 [Suspect]
     Indication: REFRACTORY ANAEMIA WITH RINGED SIDEROBLASTS
     Dosage: 20 MG, BID
     Route: 048
     Dates: start: 20130513

REACTIONS (7)
  - Haemarthrosis [Unknown]
  - Splenomegaly [Unknown]
  - Hepatomegaly [Unknown]
  - Haemoglobin decreased [Unknown]
  - Pruritus [Recovered/Resolved]
  - Urticaria [Recovered/Resolved]
  - Prurigo [Recovered/Resolved]
